FAERS Safety Report 9067737 (Version 1)
Quarter: 2013Q1

REPORT INFORMATION
  Report Type: Report from Study
  Country: LB (occurrence: LB)
  Receive Date: 20130129
  Receipt Date: 20130129
  Transmission Date: 20140127
  Serious: Yes (Death)
  Sender: FDA-Public Use
  Company Number: LB-SANOFI-AVENTIS-2013SA005370

PATIENT
  Age: 56 Year
  Sex: Male

DRUGS (6)
  1. LANTUS SOLOSTAR [Suspect]
     Indication: DIABETES MELLITUS
     Dosage: DOSE:16 UNIT(S)
     Route: 058
     Dates: start: 201207, end: 201212
  2. SOLOSTAR [Suspect]
     Indication: DEVICE THERAPY
     Dates: start: 201207, end: 201212
  3. AMARYL [Suspect]
     Indication: DIABETES MELLITUS
     Route: 048
     Dates: end: 201212
  4. SIOFOR [Concomitant]
     Indication: DIABETES MELLITUS
     Route: 048
     Dates: end: 201212
  5. CHOLESTEROL- AND TRIGLYCERIDE REDUCERS [Concomitant]
     Indication: DYSLIPIDAEMIA
     Route: 048
     Dates: end: 201212
  6. TRITACE [Concomitant]
     Indication: HYPERTENSION
     Route: 048
     Dates: end: 201212

REACTIONS (1)
  - Myocardial infarction [Fatal]
